FAERS Safety Report 21658764 (Version 3)
Quarter: 2022Q4

REPORT INFORMATION
  Report Type: Spontaneous
  Country: AR (occurrence: AR)
  Receive Date: 20221129
  Receipt Date: 20221216
  Transmission Date: 20230112
  Serious: Yes (Death)
  Sender: FDA-Public Use
  Company Number: AR-BIOGEN-2022BI01171977

PATIENT
  Age: 1 Year
  Sex: Female

DRUGS (3)
  1. SPINRAZA [Suspect]
     Active Substance: NUSINERSEN
     Indication: Spinal muscular atrophy
     Route: 050
     Dates: start: 20220623
  2. SPINRAZA [Suspect]
     Active Substance: NUSINERSEN
     Route: 050
     Dates: start: 20220622
  3. Ibupirac (Ibuprofen) [Concomitant]
     Indication: Product used for unknown indication
     Route: 050

REACTIONS (5)
  - Nasopharyngitis [Fatal]
  - Cyanosis [Fatal]
  - Cardiac arrest [Fatal]
  - Inappropriate schedule of product administration [Recovered/Resolved]
  - Pyrexia [Recovered/Resolved]

NARRATIVE: CASE EVENT DATE: 20221101
